FAERS Safety Report 8577372-X (Version None)
Quarter: 2012Q3

REPORT INFORMATION
  Report Type: 
  Country: None (occurrence: None)
  Receive Date: 20120807
  Receipt Date: 20120726
  Transmission Date: 20120928
  Serious: Yes (Other)
  Sender: FDA-Public Use
  Company Number: CA-FRI-1000029695

PATIENT
  Age: 37 Year
  Sex: Male

DRUGS (13)
  1. DILANTIN [Suspect]
     Indication: CONVULSION
     Dosage: 500 MG
  2. METOPROLOL TARTRATE [Concomitant]
     Dosage: 25 MG
     Dates: start: 20110506
  3. DILANTIN [Suspect]
     Dosage: 600 MG
     Dates: end: 20110101
  4. METOPROLOL TARTRATE [Concomitant]
     Dosage: 200 MG
     Dates: start: 20110201, end: 20110401
  5. HYOSCINE HBR HYT [Concomitant]
     Indication: DROOLING
     Dosage: 0.5 MG
     Dates: start: 20110301
  6. CELEXA [Suspect]
     Indication: DEPRESSION
     Dosage: 20 MG
     Dates: start: 20110722
  7. DILTIAZEM [Concomitant]
     Indication: HEART RATE IRREGULAR
     Dosage: 60 MG
     Dates: start: 20110101
  8. ENOXAPARIN [Concomitant]
     Indication: THROMBOSIS PROPHYLAXIS
     Dosage: 30 MG
     Route: 058
     Dates: start: 20110101, end: 20111003
  9. HYDROXYZINE [Concomitant]
     Indication: PRURITUS
     Dosage: 80 MG
     Dates: start: 20110101, end: 20110526
  10. METOPROLOL TARTRATE [Concomitant]
     Indication: BLOOD PRESSURE
     Dosage: 300 MG
     Dates: start: 20110101, end: 20110201
  11. RAMIPRIL [Concomitant]
     Indication: BLOOD PRESSURE
     Dosage: 10 MG
     Dates: start: 20110222
  12. PREVACID [Concomitant]
     Indication: GASTROOESOPHAGEAL REFLUX DISEASE
     Dosage: 30 MG
     Dates: start: 20111026
  13. METOPROLOL TARTRATE [Concomitant]
     Dosage: 50 MG
     Dates: start: 20110401, end: 20110505

REACTIONS (2)
  - DRUG LEVEL INCREASED [None]
  - DRUG INTERACTION [None]
